FAERS Safety Report 11393640 (Version 2)
Quarter: 2015Q3

REPORT INFORMATION
  Report Type: Spontaneous
  Country: FR (occurrence: FR)
  Receive Date: 20150819
  Receipt Date: 20150925
  Transmission Date: 20151125
  Serious: Yes (Hospitalization)
  Sender: FDA-Public Use
  Company Number: FR-ROCHE-1622541

PATIENT
  Age: 33 Year
  Sex: Male

DRUGS (4)
  1. ROCEPHINE [Suspect]
     Active Substance: CEFTRIAXONE SODIUM
     Indication: LUNG INFECTION
     Route: 030
     Dates: start: 20150707, end: 20150718
  2. ROVAMYCINE [Suspect]
     Active Substance: SPIRAMYCIN
     Route: 042
     Dates: start: 20150718, end: 20150723
  3. AUGMENTIN [Suspect]
     Active Substance: AMOXICILLIN\CLAVULANATE POTASSIUM
     Indication: PRODUCT USED FOR UNKNOWN INDICATION
     Route: 042
     Dates: start: 20150718, end: 20150723
  4. ROVAMYCINE [Suspect]
     Active Substance: SPIRAMYCIN
     Indication: LUNG INFECTION
     Route: 048
     Dates: start: 20150715, end: 20150718

REACTIONS (2)
  - Hepatocellular injury [Recovering/Resolving]
  - Cholestasis [Recovering/Resolving]

NARRATIVE: CASE EVENT DATE: 20150723
